FAERS Safety Report 25477739 (Version 1)
Quarter: 2025Q2

REPORT INFORMATION
  Report Type: Spontaneous
  Country: FI (occurrence: FI)
  Receive Date: 20250625
  Receipt Date: 20250625
  Transmission Date: 20250717
  Serious: No
  Sender: MYLAN
  Company Number: FI-MYLANLABS-2025M1052141

PATIENT
  Sex: Female

DRUGS (4)
  1. EPIPEN JR [Suspect]
     Active Substance: EPINEPHRINE
     Indication: Product used for unknown indication
  2. EPIPEN JR [Suspect]
     Active Substance: EPINEPHRINE
     Route: 065
  3. EPIPEN JR [Suspect]
     Active Substance: EPINEPHRINE
     Route: 065
  4. EPIPEN JR [Suspect]
     Active Substance: EPINEPHRINE

REACTIONS (2)
  - Liquid product physical issue [Unknown]
  - Product quality issue [Unknown]
